FAERS Safety Report 10784424 (Version 1)
Quarter: 2015Q1

REPORT INFORMATION
  Report Type: Spontaneous
  Country: US (occurrence: None)
  Receive Date: 20150209
  Receipt Date: 20150209
  Transmission Date: 20150721
  Serious: Yes (Life-Threatening, Other)
  Sender: FDA-Public Use
  Company Number: None

PATIENT
  Age: 52 Year
  Sex: Female
  Weight: 67.59 kg

DRUGS (2)
  1. WELLBUTRIN XL [Suspect]
     Active Substance: BUPROPION HYDROCHLORIDE
     Indication: SEASONAL AFFECTIVE DISORDER
     Dosage: 1 TABLET EVERYAM
     Route: 048
     Dates: start: 20150129, end: 20150205
  2. WELLBUTRIN XL [Suspect]
     Active Substance: BUPROPION HYDROCHLORIDE
     Indication: MAJOR DEPRESSION
     Dosage: 1 TABLET EVERYAM
     Route: 048
     Dates: start: 20150129, end: 20150205

REACTIONS (16)
  - Chills [None]
  - Influenza like illness [None]
  - Joint stiffness [None]
  - Blood pressure increased [None]
  - Agitation [None]
  - Anger [None]
  - Arthralgia [None]
  - Hallucination [None]
  - Confusional state [None]
  - Joint swelling [None]
  - Peripheral swelling [None]
  - Hyperhidrosis [None]
  - Musculoskeletal stiffness [None]
  - Swelling face [None]
  - Tinnitus [None]
  - Fatigue [None]

NARRATIVE: CASE EVENT DATE: 20150205
